FAERS Safety Report 5295387-4 (Version None)
Quarter: 2007Q2

REPORT INFORMATION
  Report Type: 
  Country: None (occurrence: None)
  Receive Date: 20070412
  Receipt Date: 20070404
  Transmission Date: 20071010
  Serious: Yes (Hospitalization)
  Sender: FDA-Public Use
  Company Number: US-GENENTECH-239581

PATIENT
  Sex: Female
  Weight: 42.63 kg

DRUGS (2)
  1. BEVACIZUMAB [Suspect]
     Indication: COLON CANCER METASTATIC
     Dosage: 5 MG/KG, 2/MONTH
     Route: 041
     Dates: start: 20070214
  2. CAPECITABINE [Suspect]
     Indication: COLON CANCER METASTATIC
     Dosage: 1800 MG, BID
     Route: 048
     Dates: start: 20070214

REACTIONS (1)
  - PANCREATITIS [None]
